FAERS Safety Report 9236469 (Version 9)
Quarter: 2014Q1

REPORT INFORMATION
  Report Type: Spontaneous
  Country: JP (occurrence: None)
  Receive Date: 20130415
  Receipt Date: 20140304
  Transmission Date: 20141002
  Serious: Yes (Death, Hospitalization)
  Sender: FDA-Public Use
  Company Number: SYM-2013-02776

PATIENT
  Age: 81 Year
  Sex: Female
  Weight: 30 kg

DRUGS (10)
  1. CHOREAZINE [Suspect]
     Indication: HUNTINGTON^S DISEASE
     Dosage: 1 IN 1 D
     Route: 048
     Dates: start: 20130226, end: 20130403
  2. TIAPRIDE HYDROCHLORIDE [Suspect]
     Indication: HUNTINGTON^S DISEASE
     Route: 048
     Dates: start: 20130226, end: 20130403
  3. ARIMIDEX (ANASTROZOLE) [Concomitant]
  4. ARIMIDEX (ANASTROZOLE) [Concomitant]
  5. ALENDRONATE SODIUM HYDRATE [Concomitant]
  6. LASIX (FUROSEMIDE) [Concomitant]
  7. YOKUKANSAN (YOKUKANSAN) (ANGELICA ACUTILOBA ROOT, PORIA COCOS SCLEROTIUM, ATRACTYLODES LANCEA RHIZOME, BUPLEURUM FALCATUM ROOT, CNIDIUM OFFICINALE RHIZOME, UNCARIA SPP. HOOK, GLYCYRRHIZA SPP. ROOT) [Concomitant]
  8. DEPAS (ETIZOLAM) [Concomitant]
  9. RINDERON (BETAMETHASONE) [Concomitant]
  10. BLOSTAR M (FAMOTIDINE) [Concomitant]

REACTIONS (4)
  - Neuroleptic malignant syndrome [None]
  - Tumour marker increased [None]
  - Screaming [None]
  - Asphyxia [None]
